FAERS Safety Report 6039849-0 (Version None)
Quarter: 2009Q1

REPORT INFORMATION
  Report Type: 
  Country: None (occurrence: None)
  Receive Date: 20090116
  Receipt Date: 20090108
  Transmission Date: 20090719
  Serious: Yes (Other)
  Sender: FDA-Public Use
  Company Number: AU-JNJFOC-20090101493

PATIENT
  Sex: Female

DRUGS (8)
  1. REMICADE [Suspect]
     Route: 042
  2. REMICADE [Suspect]
     Route: 042
  3. REMICADE [Suspect]
     Route: 042
  4. REMICADE [Suspect]
     Route: 042
  5. REMICADE [Suspect]
     Indication: CROHN'S DISEASE
     Route: 042
  6. FLAGYL [Concomitant]
  7. IMURAN [Concomitant]
  8. MESALAZINE [Concomitant]

REACTIONS (5)
  - INFUSION RELATED REACTION [None]
  - MIGRAINE [None]
  - RASH GENERALISED [None]
  - THROAT TIGHTNESS [None]
  - URTICARIA [None]
